FAERS Safety Report 6930794-2 (Version None)
Quarter: 2010Q3

REPORT INFORMATION
  Report Type: 
  Country: None (occurrence: None)
  Receive Date: 20100817
  Receipt Date: 20100817
  Transmission Date: 20110219
  Serious: Yes (Life-Threatening, Hospitalization, Other)
  Sender: FDA-Public Use
  Company Number: None

PATIENT
  Age: 45 Year
  Sex: Female
  Weight: 52.1637 kg

DRUGS (1)
  1. NAPROXEN [Suspect]
     Indication: BACK DISORDER
     Dosage: 1 TABLET TWICE DAILY PO
     Route: 048
     Dates: start: 20100712, end: 20100728

REACTIONS (4)
  - HAEMATEMESIS [None]
  - HAEMORRHAGE [None]
  - LOSS OF CONSCIOUSNESS [None]
  - SMALL INTESTINAL PERFORATION [None]
